FAERS Safety Report 9187085 (Version 2)
Quarter: 2013Q2

REPORT INFORMATION
  Report Type: Spontaneous
  Country: CA (occurrence: CA)
  Receive Date: 20130325
  Receipt Date: 20130510
  Transmission Date: 20140414
  Serious: Yes (Death)
  Sender: FDA-Public Use
  Company Number: CA-AMGEN-CANSP2013019152

PATIENT
  Age: 77 Year
  Sex: Female
  Weight: 68.18 kg

DRUGS (2)
  1. PROLIA [Suspect]
     Indication: PRODUCT USED FOR UNKNOWN INDICATION
     Dosage: UNK
     Dates: start: 20120321
  2. PROLIA [Suspect]

REACTIONS (1)
  - Death [Fatal]
